FAERS Safety Report 11809383 (Version 3)
Quarter: 2015Q4

REPORT INFORMATION
  Report Type: Report from Study
  Country: CA (occurrence: CA)
  Receive Date: 20151207
  Receipt Date: 20151227
  Transmission Date: 20160305
  Serious: Yes (Other)
  Sender: FDA-Public Use
  Company Number: CA-ROCHE-1506267

PATIENT
  Age: 69 Year
  Sex: Female

DRUGS (8)
  1. DAPSONE. [Suspect]
     Active Substance: DAPSONE
     Indication: PRODUCT USED FOR UNKNOWN INDICATION
     Route: 065
  2. SYNTHROID [Concomitant]
     Active Substance: LEVOTHYROXINE SODIUM
  3. MYFORTIC [Concomitant]
     Active Substance: MYCOPHENOLATE SODIUM
     Route: 065
  4. VITAMIN B12 [Concomitant]
     Active Substance: CYANOCOBALAMIN
  5. RITUXAN [Suspect]
     Active Substance: RITUXIMAB
     Indication: PEMPHIGOID
     Dosage: FREQUENCY:  DAY 1 AND DAY 15 AND ON 23/DEC/2014- DATE OF MOST RECENT DOSE.
     Route: 042
     Dates: start: 20141209
  6. ACETAMINOPHEN. [Concomitant]
     Active Substance: ACETAMINOPHEN
     Indication: PREMEDICATION
     Route: 048
     Dates: start: 20141209
  7. DIPHENHYDRAMINE HCL [Concomitant]
     Active Substance: DIPHENHYDRAMINE HYDROCHLORIDE
     Indication: PREMEDICATION
     Route: 048
     Dates: start: 20141209
  8. METHYLPREDNISOLONE. [Concomitant]
     Active Substance: METHYLPREDNISOLONE
     Indication: PREMEDICATION
     Route: 042
     Dates: start: 20141209

REACTIONS (12)
  - Cardiac flutter [Recovered/Resolved]
  - Off label use [Unknown]
  - Anxiety [Unknown]
  - Pemphigoid [Unknown]
  - Bronchitis [Unknown]
  - Infusion related reaction [Unknown]
  - Pemphigus [Not Recovered/Not Resolved]
  - Haemoglobin decreased [Not Recovered/Not Resolved]
  - Blood blister [Recovered/Resolved]
  - Dacryostenosis acquired [Unknown]
  - Stress [Unknown]
  - Blood pressure increased [Unknown]

NARRATIVE: CASE EVENT DATE: 20141209
